FAERS Safety Report 22650268 (Version 1)
Quarter: 2023Q2

REPORT INFORMATION
  Report Type: Report from Study
  Country: US (occurrence: US)
  Receive Date: 20230628
  Receipt Date: 20230628
  Transmission Date: 20230721
  Serious: Yes (Death)
  Sender: FDA-Public Use
  Company Number: US-VERTEX PHARMACEUTICALS-2023-009197

PATIENT
  Age: 23 Year
  Sex: Female

DRUGS (1)
  1. KALYDECO [Suspect]
     Active Substance: IVACAFTOR
     Indication: Cystic fibrosis
     Dosage: 150 MG IVACAFTOR
     Route: 048
     Dates: start: 20120525, end: 20150501

REACTIONS (1)
  - Death [Fatal]

NARRATIVE: CASE EVENT DATE: 20190111
